FAERS Safety Report 9847358 (Version 2)
Quarter: 2014Q1

REPORT INFORMATION
  Report Type: Report from Study
  Country: CA (occurrence: CA)
  Receive Date: 20140127
  Receipt Date: 20140127
  Transmission Date: 20141002
  Serious: Yes (Other)
  Sender: FDA-Public Use
  Company Number: CA-ABBVIE-14P-028-1189808-00

PATIENT
  Sex: Female
  Weight: 99.88 kg

DRUGS (11)
  1. HUMIRA [Suspect]
     Indication: PSORIATIC ARTHROPATHY
     Route: 058
     Dates: start: 20110706
  2. ALLOPURINOL [Concomitant]
     Indication: RENAL LITHIASIS PROPHYLAXIS
     Route: 048
  3. ASPIRIN [Concomitant]
     Indication: CARDIOVASCULAR EVENT PROPHYLAXIS
     Route: 048
  4. LIRAGLUTIDE [Concomitant]
     Indication: DIABETES MELLITUS
     Route: 058
  5. NOVORAPID [Concomitant]
     Indication: DIABETES MELLITUS
     Dosage: 30 TO 40MG
     Route: 058
  6. NOVOLIN NPH [Concomitant]
     Indication: DIABETES MELLITUS
     Dosage: 30 TO 32 UNITS
     Route: 058
  7. MOMETASONE FUROATE [Concomitant]
     Indication: HYPERSENSITIVITY
     Dosage: 2 SPRAYS
     Route: 055
  8. SINGULAIR [Concomitant]
     Indication: HYPERSENSITIVITY
     Route: 048
  9. RABEPRAZOLE SODIUM [Concomitant]
     Indication: GASTROOESOPHAGEAL REFLUX DISEASE
     Route: 048
  10. METHOTREXATE [Concomitant]
     Indication: PSORIATIC ARTHROPATHY
     Route: 048
  11. LISINOPRIL [Concomitant]
     Indication: HYPERTENSION
     Route: 048

REACTIONS (1)
  - Osteoarthritis [Not Recovered/Not Resolved]
